FAERS Safety Report 18268101 (Version 2)
Quarter: 2020Q4

REPORT INFORMATION
  Report Type: Report from Study
  Country: GB (occurrence: GB)
  Receive Date: 20200915
  Receipt Date: 20201125
  Transmission Date: 20210113
  Serious: Yes (Other)
  Sender: FDA-Public Use
  Company Number: NVSC2020GB250080

PATIENT
  Sex: Female

DRUGS (2)
  1. HYRIMOZ [Suspect]
     Active Substance: ADALIMUMAB-ADAZ
     Dosage: 40 MG, Q2W (WEEK 1)
     Route: 058
  2. HYRIMOZ [Suspect]
     Active Substance: ADALIMUMAB-ADAZ
     Indication: PSORIASIS
     Dosage: 80 MG, UNKNOWN, WEEK 0
     Route: 058
     Dates: start: 20200902

REACTIONS (4)
  - Limb injury [Unknown]
  - Skin disorder [Unknown]
  - Pain in extremity [Unknown]
  - Psoriatic arthropathy [Unknown]
